FAERS Safety Report 22059860 (Version 1)
Quarter: 2023Q1

REPORT INFORMATION
  Report Type: Spontaneous
  Country: US (occurrence: None)
  Receive Date: 20230302
  Receipt Date: 20230302
  Transmission Date: 20230417
  Serious: Yes (Congenital Anomaly)
  Sender: FDA-Public Use
  Company Number: None

PATIENT
  Age: 26 Year
  Sex: Female
  Weight: 49.5 kg

DRUGS (1)
  1. TIROSINT-SOL [Suspect]
     Active Substance: LEVOTHYROXINE SODIUM
     Indication: Autoimmune thyroiditis
     Dosage: OTHER QUANTITY : 30 AMPULE;?
     Route: 048
     Dates: start: 20221128, end: 20230105

REACTIONS (4)
  - Small for dates baby [None]
  - Foetal heart rate abnormal [None]
  - Recalled product administered [None]
  - Exposure during pregnancy [None]

NARRATIVE: CASE EVENT DATE: 20230112
